FAERS Safety Report 6212093-X (Version None)
Quarter: 2009Q2

REPORT INFORMATION
  Report Type: 
  Country: None (occurrence: None)
  Receive Date: 20090602
  Receipt Date: 20090602
  Transmission Date: 20091009
  Serious: Yes (Other)
  Sender: FDA-Public Use
  Company Number: US-PFIZER INC-2009193683

PATIENT
  Sex: Female
  Weight: 54.422 kg

DRUGS (1)
  1. LYRICA [Suspect]
     Indication: FIBROMYALGIA
     Dosage: 25 MG, 2X/DAY
     Dates: start: 20090403

REACTIONS (4)
  - ARTERIOSPASM CORONARY [None]
  - CHEST PAIN [None]
  - NECK PAIN [None]
  - PAIN IN JAW [None]
